FAERS Safety Report 24996758 (Version 1)
Quarter: 2025Q1

REPORT INFORMATION
  Report Type: Report from Study
  Country: ES (occurrence: ES)
  Receive Date: 20250221
  Receipt Date: 20250221
  Transmission Date: 20250408
  Serious: Yes (Other)
  Sender: UCB
  Company Number: ES-UCBSA-2023059200

PATIENT

DRUGS (1)
  1. BIMEKIZUMAB [Suspect]
     Active Substance: BIMEKIZUMAB
     Indication: Product used for unknown indication
     Dates: start: 20231214, end: 20240404

REACTIONS (29)
  - Pancreatitis acute [Unknown]
  - Blood triglycerides increased [Unknown]
  - Gastroenteritis [Unknown]
  - Blood cholesterol increased [Unknown]
  - Embolism [Unknown]
  - Gastric operation [Unknown]
  - Poisoning [Unknown]
  - Cholecystitis acute [Unknown]
  - Psoriasis [Unknown]
  - Administration site reaction [Unknown]
  - Gastrointestinal disorder [Unknown]
  - Musculoskeletal disorder [Unknown]
  - Nervous system disorder [Unknown]
  - Neoplasm [Unknown]
  - Respiratory disorder [Unknown]
  - Angiopathy [Unknown]
  - Medical procedure [Unknown]
  - Injury [Unknown]
  - Procedural complication [Unknown]
  - Eye disorder [Unknown]
  - Hepatobiliary disease [Unknown]
  - Mental disorder [Unknown]
  - Reproductive tract disorder [Unknown]
  - Breast disorder [Unknown]
  - Metabolic disorder [Unknown]
  - Malnutrition [Unknown]
  - Investigation [Unknown]
  - Skin disorder [Unknown]
  - Infection [Unknown]
